FAERS Safety Report 4546611-4 (Version None)
Quarter: 2005Q1

REPORT INFORMATION
  Report Type: 
  Country: None (occurrence: None)
  Receive Date: 20050103
  Receipt Date: 20041223
  Transmission Date: 20050727
  Serious: Yes (Other)
  Sender: FDA-Public Use
  Company Number: S04-USA-07938-01

PATIENT

DRUGS (1)
  1. NAMEDA(MEMANTINE HCL) [Suspect]

REACTIONS (1)
  - BLOOD PRESSURE SYSTOLIC INCREASED [None]
